FAERS Safety Report 14923949 (Version 1)
Quarter: 2018Q2

REPORT INFORMATION
  Report Type: Spontaneous
  Country: US (occurrence: US)
  Receive Date: 20180522
  Receipt Date: 20180522
  Transmission Date: 20180711
  Serious: No
  Sender: FDA-Public Use
  Company Number: US-B.I. PHARMACEUTICALS,INC./RIDGEFIELD-2018-BI-027027

PATIENT
  Age: 71 Year
  Sex: Male

DRUGS (2)
  1. JARDIANCE [Suspect]
     Active Substance: EMPAGLIFLOZIN
     Dosage: TAKING TWO TABLETS IN THE MORNING AND ONE TABLET IN THE EVENING; STRENGTH: 10 MG; ADMIN CORRECT? NO
     Route: 048
     Dates: start: 20180509, end: 20180521
  2. JARDIANCE [Suspect]
     Active Substance: EMPAGLIFLOZIN
     Indication: TYPE 2 DIABETES MELLITUS
     Dosage: STRENGTH: 10 MG; ADMINISTRATION CORRECT? YES; ACTION TAKEN: DOSE INCREASED
     Route: 048
     Dates: start: 20180420, end: 20180509

REACTIONS (1)
  - Incorrect dose administered [Unknown]

NARRATIVE: CASE EVENT DATE: 20180514
